FAERS Safety Report 7660441-6 (Version None)
Quarter: 2011Q3

REPORT INFORMATION
  Report Type: 
  Country: None (occurrence: None)
  Receive Date: 20110805
  Receipt Date: 20110725
  Transmission Date: 20111222
  Serious: Yes (Other)
  Sender: FDA-Public Use
  Company Number: CA-AMGEN-CANSP2011037559

PATIENT

DRUGS (2)
  1. METHOTREXATE [Suspect]
     Dosage: UNK
     Route: 064
  2. ENBREL [Suspect]
     Dosage: 50 MG, QWK
     Route: 064

REACTIONS (1)
  - FOETAL DISORDER [None]
